FAERS Safety Report 5288451-7 (Version None)
Quarter: 2007Q2

REPORT INFORMATION
  Report Type: 
  Country: None (occurrence: None)
  Receive Date: 20070405
  Receipt Date: 20070324
  Transmission Date: 20071010
  Serious: Yes (Other)
  Sender: FDA-Public Use
  Company Number: PHEH2007US03538

PATIENT
  Sex: Female

DRUGS (1)
  1. ZELNORM [Suspect]
     Indication: CONSTIPATION
     Route: 048
     Dates: start: 20060301, end: 20060501

REACTIONS (2)
  - COLECTOMY TOTAL [None]
  - DRUG INEFFECTIVE [None]
